FAERS Safety Report 23692109 (Version 1)
Quarter: 2024Q1

REPORT INFORMATION
  Report Type: Spontaneous
  Country: US (occurrence: None)
  Receive Date: 20240329
  Receipt Date: 20240329
  Transmission Date: 20240410
  Serious: No
  Sender: FDA-Public Use
  Company Number: None

PATIENT
  Age: 59 Year
  Sex: Male

DRUGS (2)
  1. TACROLIMUS [Suspect]
     Active Substance: TACROLIMUS
     Dosage: 0.5 MG DAILY ORAL
     Route: 048
  2. TACROLIMUS [Suspect]
     Active Substance: TACROLIMUS
     Dosage: 1 MG TWICE A  DAY ORAL?
     Route: 048

REACTIONS (1)
  - Vision blurred [None]

NARRATIVE: CASE EVENT DATE: 20240329
